FAERS Safety Report 8017446 (Version 3)
Quarter: 2012Q4

REPORT INFORMATION
  Report Type: Report from Study
  Country: GB (occurrence: GB)
  Receive Date: 20110630
  Receipt Date: 20121113
  Transmission Date: 20130627
  Serious: Yes (Other)
  Sender: FDA-Public Use
  Company Number: GB-PFIZER INC-2011138155

PATIENT
  Age: 59 Year
  Sex: Female

DRUGS (5)
  1. GEMTUZUMAB OZOGAMICIN [Suspect]
     Dosage: UNK
     Dates: start: 20110112, end: 20110122
  2. CYTARABINE [Suspect]
     Dosage: UNK
     Dates: start: 20110112, end: 20110122
  3. DAUNORUBICIN [Suspect]
     Dosage: UNK
     Dates: start: 20110112, end: 20110122
  4. CHLORHEXIDINE [Concomitant]
     Dosage: 10 ml, UNK
     Dates: start: 20110112
  5. DIFFLAM [Concomitant]
     Dosage: 10 ml, UNK
     Dates: start: 20110112

REACTIONS (1)
  - Exfoliative rash [Recovered/Resolved]
